FAERS Safety Report 12672920 (Version 2)
Quarter: 2016Q4

REPORT INFORMATION
  Report Type: Spontaneous
  Country: DK (occurrence: DK)
  Receive Date: 20160822
  Receipt Date: 20161114
  Transmission Date: 20170207
  Serious: Yes (Hospitalization)
  Sender: FDA-Public Use
  Company Number: DK-NOVOPROD-505141

PATIENT
  Age: 71 Year
  Sex: Female
  Weight: 140 kg

DRUGS (5)
  1. VAGIFEM [Suspect]
     Active Substance: ESTRADIOL
     Indication: OFF LABEL USE
  2. AMLODIPIN ACTAVIS                  /00972402/ [Concomitant]
     Indication: HYPERTENSION
  3. VAGIFEM [Suspect]
     Active Substance: ESTRADIOL
     Indication: URINARY INCONTINENCE
     Dosage: 25 MIKROGRAM AND 10 MIKROGRAM
     Route: 067
     Dates: end: 201606
  4. SIMVASTATIN ACTAVIS [Concomitant]
     Active Substance: SIMVASTATIN
     Indication: HYPERCHOLESTEROLAEMIA
  5. LISINOPRIL + HIDROCLOROTIAZIDA [Concomitant]
     Active Substance: HYDROCHLOROTHIAZIDE\LISINOPRIL
     Indication: HYPERTENSION

REACTIONS (4)
  - Hysterectomy [Recovered/Resolved]
  - Off label use [Recovered/Resolved]
  - Vaginal haemorrhage [Recovered/Resolved]
  - Endometrial hyperplasia [Recovered/Resolved]

NARRATIVE: CASE EVENT DATE: 20160605
